FAERS Safety Report 7934295-4 (Version None)
Quarter: 2011Q4

REPORT INFORMATION
  Report Type: 
  Country: None (occurrence: None)
  Receive Date: 20111122
  Receipt Date: 20111115
  Transmission Date: 20120403
  Serious: Yes (Other)
  Sender: FDA-Public Use
  Company Number: US-SANOFI-AVENTIS-2011SA075391

PATIENT
  Age: 69 Year
  Sex: Male
  Weight: 91.2 kg

DRUGS (3)
  1. PLAVIX [Suspect]
     Dates: start: 20020101, end: 20020101
  2. PLAVIX [Suspect]
     Route: 048
     Dates: start: 20091001, end: 20110101
  3. ANTIHYPERTENSIVES [Concomitant]

REACTIONS (9)
  - CORONARY ARTERY OCCLUSION [None]
  - GASTROINTESTINAL HAEMORRHAGE [None]
  - FEELING ABNORMAL [None]
  - FATIGUE [None]
  - RED BLOOD CELL COUNT DECREASED [None]
  - MELAENA [None]
  - ASTHENIA [None]
  - GASTROINTESTINAL DISORDER [None]
  - DYSPNOEA [None]
